FAERS Safety Report 18777839 (Version 1)
Quarter: 2021Q1

REPORT INFORMATION
  Report Type: Spontaneous
  Country: US (occurrence: US)
  Receive Date: 20210122
  Receipt Date: 20210122
  Transmission Date: 20210419
  Serious: No
  Sender: FDA-Public Use
  Company Number: 2020SGN03951

PATIENT
  Sex: Female

DRUGS (4)
  1. TUKYSA [Suspect]
     Active Substance: TUCATINIB
     Indication: BREAST CANCER FEMALE
     Dosage: UNK
     Route: 048
  2. TUKYSA [Suspect]
     Active Substance: TUCATINIB
     Dosage: 150 MG, 2 TABLETS
  3. XELODA [Suspect]
     Active Substance: CAPECITABINE
     Indication: BREAST CANCER FEMALE
     Dosage: 500 MG, BID, 2 TABLETS
     Route: 048
  4. ZYLET [Suspect]
     Active Substance: LOTEPREDNOL ETABONATE\TOBRAMYCIN
     Indication: PRODUCT USED FOR UNKNOWN INDICATION

REACTIONS (17)
  - Speech disorder [Unknown]
  - Dehydration [Unknown]
  - Dysphagia [Unknown]
  - Dyspnoea [Unknown]
  - Decreased appetite [Unknown]
  - Candida infection [Unknown]
  - Cough [Unknown]
  - Stomatitis [Unknown]
  - Palmar-plantar erythrodysaesthesia syndrome [Unknown]
  - Pneumonia [Unknown]
  - Pharyngeal disorder [Unknown]
  - Adverse drug reaction [Unknown]
  - Productive cough [Unknown]
  - Pharyngeal ulceration [Unknown]
  - Pleural effusion [Unknown]
  - Nausea [Recovering/Resolving]
  - Vomiting [Recovering/Resolving]
